FAERS Safety Report 6638887-4 (Version None)
Quarter: 2010Q1

REPORT INFORMATION
  Report Type: 
  Country: None (occurrence: None)
  Receive Date: 20100317
  Receipt Date: 20100312
  Transmission Date: 20100710
  Serious: Yes (Other)
  Sender: FDA-Public Use
  Company Number: GXKR2010DE02898

PATIENT
  Sex: Female

DRUGS (3)
  1. FLUOROURACIL [Suspect]
  2. OXALIPLATIN [Concomitant]
  3. FOLINIC ACID [Concomitant]

REACTIONS (4)
  - CONFUSIONAL STATE [None]
  - LEUKOENCEPHALOPATHY [None]
  - MUSCLE SPASMS [None]
  - SPEECH DISORDER [None]
